FAERS Safety Report 10015569 (Version 4)
Quarter: 2015Q2

REPORT INFORMATION
  Report Type: Spontaneous
  Country: JP (occurrence: JP)
  Receive Date: 20140317
  Receipt Date: 20150430
  Transmission Date: 20150821
  Serious: Yes (Hospitalization, Other)
  Sender: FDA-Public Use
  Company Number: JP-MPIJNJ-2014JNJ000850

PATIENT

DRUGS (12)
  1. LEUNASE [Suspect]
     Active Substance: ASPARAGINASE
     Indication: PRODUCT USED FOR UNKNOWN INDICATION
     Dosage: 2700 IU, UNK
     Route: 042
     Dates: start: 20130415, end: 20130422
  2. DEXART [Suspect]
     Active Substance: DEXAMETHASONE SODIUM PHOSPHATE
     Indication: PRODUCT USED FOR UNKNOWN INDICATION
     Dosage: 4.62 MG, ONE PER ONE DAY
     Route: 042
     Dates: start: 20130413, end: 20130426
  3. VELCADE [Suspect]
     Active Substance: BORTEZOMIB
     Dosage: 0.6 MG, ONE PER ONE DAY
     Route: 042
     Dates: start: 20130419, end: 20130419
  4. ADRIACIN [Suspect]
     Active Substance: DOXORUBICIN HYDROCHLORIDE
     Indication: PRODUCT USED FOR UNKNOWN INDICATION
     Dosage: 27 MG, UNK
     Route: 042
     Dates: start: 20130413, end: 20130413
  5. VELCADE [Suspect]
     Active Substance: BORTEZOMIB
     Dosage: 0.6 MG, ONE PER ONE DAY
     Route: 042
     Dates: start: 20130422, end: 20130422
  6. METHOTREXATE [Concomitant]
     Active Substance: METHOTREXATE
     Indication: IMMUNOSUPPRESSION
     Route: 065
  7. MELPHALAN [Concomitant]
     Active Substance: MELPHALAN
     Indication: PREMEDICATION
     Route: 065
  8. TACROLIMUS. [Concomitant]
     Active Substance: TACROLIMUS
     Indication: IMMUNOSUPPRESSION
     Route: 065
  9. ONCOVIN [Suspect]
     Active Substance: VINCRISTINE SULFATE
     Indication: PRODUCT USED FOR UNKNOWN INDICATION
     Dosage: 0.68 MG, ONE PER ONE DAY
     Route: 042
     Dates: start: 20130413, end: 20130419
  10. FLUDARABINE [Concomitant]
     Active Substance: FLUDARABINE PHOSPHATE
     Indication: PREMEDICATION
     Route: 065
  11. ATG                                /00575401/ [Concomitant]
     Active Substance: LAPINE T-LYMPHOCYTE IMMUNE GLOBULIN
     Indication: PREMEDICATION
     Dosage: 5 MG/KG, UNK
     Route: 065
  12. VELCADE [Suspect]
     Active Substance: BORTEZOMIB
     Indication: ACUTE LYMPHOCYTIC LEUKAEMIA
     Dosage: 0.6 MG, UNK
     Route: 042
     Dates: start: 20130415, end: 20130415

REACTIONS (4)
  - Lymphopenia [Not Recovered/Not Resolved]
  - Graft versus host disease in gastrointestinal tract [Recovering/Resolving]
  - Product use issue [Unknown]
  - Febrile neutropenia [Recovered/Resolved]

NARRATIVE: CASE EVENT DATE: 20130415
